FAERS Safety Report 13735588 (Version 1)
Quarter: 2017Q3

REPORT INFORMATION
  Report Type: Spontaneous
  Country: None (occurrence: US)
  Receive Date: 20170709
  Receipt Date: 20170709
  Transmission Date: 20171127
  Serious: Yes (Other)
  Sender: FDA-Public Use
  Company Number: None

PATIENT
  Age: 34 Year
  Sex: Female

DRUGS (2)
  1. CAPSAICIN 8% PATCH [Suspect]
     Active Substance: CAPSAICIN
     Indication: ANALGESIC THERAPY
     Dosage: ?          QUANTITY:1 PATCH(ES);OTHER FREQUENCY:ONCE;?
     Route: 062
     Dates: start: 20170708
  2. TRAMADOL. [Concomitant]
     Active Substance: TRAMADOL

REACTIONS (3)
  - Insomnia [None]
  - Burning sensation [None]
  - Pain [None]

NARRATIVE: CASE EVENT DATE: 20170708
